FAERS Safety Report 5363831-X (Version None)
Quarter: 2007Q2

REPORT INFORMATION
  Report Type: 
  Country: None (occurrence: None)
  Receive Date: 20070620
  Receipt Date: 20070608
  Transmission Date: 20071010
  Serious: Yes (Life-Threatening, Hospitalization)
  Sender: FDA-Public Use
  Company Number: FR-SANOFI-SYNTHELABO-A02200701576

PATIENT
  Age: 38 Year
  Sex: Female

DRUGS (3)
  1. BETAXOLOL [Suspect]
     Indication: INTENTIONAL OVERDOSE
     Dosage: 5.32 G
     Route: 048
  2. ALCOHOL [Concomitant]
     Indication: INTENTIONAL OVERDOSE
     Dosage: UNK
     Route: 048
  3. LORAZEPAM [Concomitant]
     Indication: INTENTIONAL OVERDOSE
     Dosage: 30 G
     Route: 048

REACTIONS (3)
  - CARDIOGENIC SHOCK [None]
  - INTENTIONAL OVERDOSE [None]
  - VENTRICULAR HYPOKINESIA [None]
